FAERS Safety Report 8475469-6 (Version None)
Quarter: 2012Q2

REPORT INFORMATION
  Report Type: 
  Country: None (occurrence: None)
  Receive Date: 20120628
  Receipt Date: 20120628
  Transmission Date: 20120825
  Serious: Yes (Other)
  Sender: FDA-Public Use
  Company Number: AU-PFIZER INC-2009273817

PATIENT
  Age: 49 Year
  Sex: Male

DRUGS (4)
  1. MORPHINE HCL [Suspect]
     Dosage: 600 MG, SINGLE
  2. DIAZEPAM [Suspect]
     Dosage: 250 MG, SINGLE
  3. TRAMADOL HCL [Suspect]
     Dosage: 15 X 200 MG
  4. VERAPAMIL HYDROCHLORIDE [Suspect]

REACTIONS (5)
  - HYPOTENSION [None]
  - SOMNOLENCE [None]
  - INTENTIONAL OVERDOSE [None]
  - NODAL RHYTHM [None]
  - DISORIENTATION [None]
